FAERS Safety Report 23402613 (Version 3)
Quarter: 2024Q1

REPORT INFORMATION
  Report Type: Spontaneous
  Country: US (occurrence: US)
  Receive Date: 20240115
  Receipt Date: 20240122
  Transmission Date: 20240410
  Serious: No
  Sender: FDA-Public Use
  Company Number: US-PURDUE-USA-2024-0307090

PATIENT
  Sex: Female
  Weight: 99.34 kg

DRUGS (1)
  1. BUPRENORPHINE [Suspect]
     Active Substance: BUPRENORPHINE
     Indication: Pain management
     Dosage: 10 MCG/HR
     Route: 062
     Dates: start: 2015

REACTIONS (3)
  - Application site rash [Unknown]
  - Application site pruritus [Unknown]
  - Product adhesion issue [Unknown]
